FAERS Safety Report 18842461 (Version 1)
Quarter: 2021Q1

REPORT INFORMATION
  Report Type: Spontaneous
  Country: AU (occurrence: AU)
  Receive Date: 20210203
  Receipt Date: 20210203
  Transmission Date: 20210419
  Serious: Yes (Other)
  Sender: FDA-Public Use
  Company Number: AU-GLAXOSMITHKLINE-AUCH2021APC002198

PATIENT
  Age: 1 Year
  Sex: Male

DRUGS (2)
  1. IBUPROFEN. [Suspect]
     Active Substance: IBUPROFEN
     Indication: PRODUCT USED FOR UNKNOWN INDICATION
     Dosage: UNK
  2. BONJELA (CHOLINE SALICYLATE) [Suspect]
     Active Substance: CHOLINE SALICYLATE
     Indication: PRODUCT USED FOR UNKNOWN INDICATION
     Dosage: UNK

REACTIONS (18)
  - Hypoglycaemia [Unknown]
  - Rhinitis [Unknown]
  - Diarrhoea [Unknown]
  - Acute hepatic failure [Unknown]
  - Unresponsive to stimuli [Unknown]
  - Hyperammonaemia [Unknown]
  - Parainfluenzae virus infection [Unknown]
  - Lactic acidosis [Unknown]
  - Coagulopathy [Unknown]
  - Hypotonia [Unknown]
  - Depressed level of consciousness [Unknown]
  - Cough [Unknown]
  - Tachypnoea [Unknown]
  - Analgesic drug level increased [Unknown]
  - Mydriasis [Unknown]
  - Hyperventilation [Unknown]
  - Transaminases increased [Unknown]
  - Vomiting [Unknown]
